FAERS Safety Report 5735154-8 (Version None)
Quarter: 2008Q2

REPORT INFORMATION
  Report Type: 
  Country: None (occurrence: None)
  Receive Date: 20080512
  Receipt Date: 20080428
  Transmission Date: 20081010
  Serious: Yes (Hospitalization, Other)
  Sender: FDA-Public Use
  Company Number: FR-ROCHE-562495

PATIENT
  Age: 28 Year
  Sex: Male

DRUGS (2)
  1. INTERFERON ALFA-2A [Suspect]
     Route: 065
     Dates: start: 19990501
  2. PREDNISONE TAB [Suspect]
     Indication: DRUG USE FOR UNKNOWN INDICATION
     Route: 065

REACTIONS (5)
  - HAEMORRHAGE [None]
  - KIDNEY TRANSPLANT REJECTION [None]
  - RENAL VASCULITIS [None]
  - TRANSPLANT REJECTION [None]
  - VENOUS THROMBOSIS [None]
